FAERS Safety Report 7815403-2 (Version None)
Quarter: 2011Q4

REPORT INFORMATION
  Report Type: 
  Country: None (occurrence: None)
  Receive Date: 20111014
  Receipt Date: 20111008
  Transmission Date: 20120403
  Serious: Yes (Hospitalization)
  Sender: FDA-Public Use
  Company Number: US-B.I. PHARMACEUTICALS,INC./RIDGEFIELD-2011-BP-23891BP

PATIENT
  Age: 64 Year
  Sex: Female

DRUGS (4)
  1. ACCUPRIL [Concomitant]
     Indication: HYPERTENSION
     Dosage: 20 MG
     Route: 048
     Dates: start: 19960101
  2. LASIX [Concomitant]
     Indication: HYPERTENSION
     Dosage: 20 MG
     Route: 048
     Dates: start: 19960101
  3. PRADAXA [Suspect]
     Indication: ATRIAL FIBRILLATION
     Dosage: 300 MG
     Route: 048
     Dates: start: 20110501
  4. COREG [Concomitant]
     Indication: CARDIAC DISORDER
     Dosage: 25 MG
     Route: 048
     Dates: start: 19990101

REACTIONS (7)
  - RED CELL DISTRIBUTION WIDTH ABNORMAL [None]
  - HAEMOGLOBIN ABNORMAL [None]
  - ATRIAL FIBRILLATION [None]
  - RED BLOOD CELL COUNT DECREASED [None]
  - GLOMERULAR FILTRATION RATE DECREASED [None]
  - CONTUSION [None]
  - RED BLOOD CELL ABNORMALITY [None]
